FAERS Safety Report 13360295 (Version 5)
Quarter: 2017Q3

REPORT INFORMATION
  Report Type: Spontaneous
  Country: KR (occurrence: KR)
  Receive Date: 20170322
  Receipt Date: 20170728
  Transmission Date: 20171127
  Serious: Yes (Hospitalization, Other)
  Sender: FDA-Public Use
  Company Number: KR-009507513-1703KOR009397

PATIENT
  Age: 60 Year
  Sex: Male
  Weight: 60.2 kg

DRUGS (24)
  1. 5-FU CHOONGWAE [Concomitant]
     Dosage: STRENGHT 1000MG/20ML; CYCLE 2, 2000 MG, QD
     Route: 042
     Dates: start: 20161107, end: 20161110
  2. DEXAMETHASONE SODIUM PHOSPHATE. [Concomitant]
     Active Substance: DEXAMETHASONE SODIUM PHOSPHATE
     Dosage: (STRENGHT 5 MG/ML); 12 MG, QD
     Route: 042
     Dates: start: 20161107
  3. DEXAMETHASONE SODIUM PHOSPHATE. [Concomitant]
     Active Substance: DEXAMETHASONE SODIUM PHOSPHATE
     Dosage: (STRENGHT 5 MG/ML); 8 MG, QD
     Route: 042
     Dates: start: 20161108, end: 20161109
  4. PANTOLOC [Concomitant]
     Active Substance: PANTOPRAZOLE SODIUM
     Dosage: 40 MG, QD
     Route: 042
     Dates: start: 20161107, end: 20161110
  5. ALOXI [Concomitant]
     Active Substance: PALONOSETRON HYDROCHLORIDE
     Indication: PREMEDICATION
     Dosage: 0.25 MG, ONCE
     Route: 042
     Dates: start: 20161010, end: 20161010
  6. URSA TABLETS [Concomitant]
     Indication: HEPATIC LESION
     Dosage: STRENGHT: 100 SC; 1 CAPSULE BID
     Route: 048
     Dates: start: 20160926, end: 20161115
  7. SOLETON [Concomitant]
     Active Substance: ZALTOPROFEN
     Indication: BACK PAIN
     Dosage: 80 MG 1 TABLET, TID
     Route: 048
     Dates: start: 20160926, end: 20161115
  8. CISPLAN [Concomitant]
     Active Substance: CISPLATIN
     Indication: OESOPHAGEAL CARCINOMA
     Dosage: STRENGHT 50MG/100ML; CYCLE 1, 1000 MG, ONCE
     Dates: start: 20161010, end: 20161010
  9. TIROPA (TICLOPIDINE HYDROCHLORIDE) [Concomitant]
     Indication: CHOLELITHIASIS
     Dosage: 100 MG TABLET; TID
     Route: 048
     Dates: start: 20160926, end: 20161115
  10. MUCOSTA [Concomitant]
     Active Substance: REBAMIPIDE
     Indication: GASTRITIS PROPHYLAXIS
     Dosage: 100 MG 1 TABLET, TID
     Route: 048
     Dates: start: 20160926, end: 20161115
  11. MAGO [Concomitant]
     Indication: DYSPHAGIA
     Dosage: 500 MG, QD
     Route: 048
     Dates: start: 20161014, end: 20161116
  12. METOCLOPRAMIDE. [Concomitant]
     Active Substance: METOCLOPRAMIDE
     Indication: DYSPHAGIA
     Dosage: 3.84 MG, QD
     Route: 048
     Dates: start: 20161014, end: 20161116
  13. 5-FU CHOONGWAE [Concomitant]
     Indication: OESOPHAGEAL CARCINOMA
     Dosage: STRENGHT 1000MG/20ML; CYCLE 1, 2000 MG, QD
     Route: 042
     Dates: start: 20161010, end: 20161013
  14. DEXAMETHASONE SODIUM PHOSPHATE. [Concomitant]
     Active Substance: DEXAMETHASONE SODIUM PHOSPHATE
     Dosage: (STRENGHT 5 MG/ML); 8 MG, BID
     Route: 042
     Dates: start: 20161013
  15. DEXAMETHASONE SODIUM PHOSPHATE. [Concomitant]
     Active Substance: DEXAMETHASONE SODIUM PHOSPHATE
     Dosage: (STRENGHT 5 MG/ML); 8 MG, BID
     Route: 042
     Dates: start: 20161110
  16. LODIEN [Concomitant]
     Indication: HYPERTENSION
     Dosage: 5 MG 1 TABLET, QD
     Route: 048
     Dates: start: 20160927, end: 20161115
  17. EMEND (FOSAPREPITANT DIMEGLUMINE) [Suspect]
     Active Substance: FOSAPREPITANT DIMEGLUMINE
     Indication: PROPHYLAXIS OF NAUSEA AND VOMITING
     Dosage: 150 MG, ONCE
     Route: 042
     Dates: start: 20161010, end: 20161010
  18. DEXAMETHASONE SODIUM PHOSPHATE. [Concomitant]
     Active Substance: DEXAMETHASONE SODIUM PHOSPHATE
     Indication: PREMEDICATION
     Dosage: (STRENGHT 5 MG/ML); 12 MG, QD
     Route: 042
     Dates: start: 20161010
  19. ALOXI [Concomitant]
     Active Substance: PALONOSETRON HYDROCHLORIDE
     Dosage: 0.25 MG, ONCE
     Route: 042
     Dates: start: 20161107, end: 20161107
  20. ULTRACET [Concomitant]
     Active Substance: ACETAMINOPHEN\TRAMADOL HYDROCHLORIDE
     Indication: PAIN
     Dosage: 1 TABLET, BID
     Route: 048
     Dates: start: 20160926, end: 20161115
  21. EMEND (FOSAPREPITANT DIMEGLUMINE) [Suspect]
     Active Substance: FOSAPREPITANT DIMEGLUMINE
     Dosage: 150 MG, ONCE
     Route: 042
     Dates: start: 20161107, end: 20161107
  22. DEXAMETHASONE SODIUM PHOSPHATE. [Concomitant]
     Active Substance: DEXAMETHASONE SODIUM PHOSPHATE
     Dosage: (STRENGHT 5 MG/ML); 8 MG, QD
     Dates: start: 20161011, end: 20161012
  23. CISPLAN [Concomitant]
     Active Substance: CISPLATIN
     Dosage: (STRENGHT 50 MG/100 ML), CYCLE 2, 100 MG, ONCE
     Route: 042
     Dates: start: 20161107, end: 20161107
  24. PANTOLOC [Concomitant]
     Active Substance: PANTOPRAZOLE SODIUM
     Indication: PREMEDICATION
     Dosage: 40 MG, QD
     Route: 042
     Dates: start: 20161010, end: 20161013

REACTIONS (2)
  - Chest pain [Recovered/Resolved]
  - Dysphagia [Recovered/Resolved]

NARRATIVE: CASE EVENT DATE: 20161117
